FAERS Safety Report 11449729 (Version 1)
Quarter: 2015Q3

REPORT INFORMATION
  Report Type: Spontaneous
  Country: US (occurrence: US)
  Receive Date: 20150903
  Receipt Date: 20150903
  Transmission Date: 20151125
  Serious: No
  Sender: FDA-Public Use
  Company Number: US-ROCHE-1084628

PATIENT
  Sex: Female

DRUGS (3)
  1. RIBAVIRIN. [Suspect]
     Active Substance: RIBAVIRIN
     Indication: CHRONIC HEPATITIS C
     Route: 065
     Dates: start: 20120704
  2. TELAPREVIR [Suspect]
     Active Substance: TELAPREVIR
     Indication: CHRONIC HEPATITIS C
     Route: 065
     Dates: start: 20120704
  3. PEGASYS [Suspect]
     Active Substance: PEGINTERFERON ALFA-2A
     Indication: CHRONIC HEPATITIS C
     Route: 058
     Dates: start: 20120704

REACTIONS (12)
  - Dizziness [Unknown]
  - Balance disorder [Unknown]
  - Oropharyngeal blistering [Unknown]
  - Anxiety [Unknown]
  - Oral mucosal blistering [Unknown]
  - Decreased appetite [Unknown]
  - Injection site vesicles [Unknown]
  - Injection site discolouration [Unknown]
  - Abdominal distension [Unknown]
  - Proctalgia [Unknown]
  - Night sweats [Unknown]
  - Rash erythematous [Unknown]
